FAERS Safety Report 21178715 (Version 1)
Quarter: 2022Q3

REPORT INFORMATION
  Report Type: Report from Study
  Country: DE (occurrence: DE)
  Receive Date: 20220805
  Receipt Date: 20220805
  Transmission Date: 20221026
  Serious: Yes (Life-Threatening, Hospitalization)
  Sender: FDA-Public Use
  Company Number: DE-ABBVIE-22P-062-4491352-00

PATIENT
  Age: 82 Year
  Sex: Male
  Weight: 50 kg

DRUGS (67)
  1. VENETOCLAX [Suspect]
     Active Substance: VENETOCLAX
     Indication: Acute myeloid leukaemia
     Route: 048
     Dates: start: 20210910, end: 20220404
  2. PF-07842805 [Concomitant]
     Indication: Aspergillus infection
     Route: 042
     Dates: start: 20220216, end: 20220216
  3. PF-07842805 [Concomitant]
     Route: 048
     Dates: start: 20220216, end: 20220329
  4. PF-07842805 [Concomitant]
     Route: 042
     Dates: start: 20220217, end: 20220218
  5. AZACITIDINE [Concomitant]
     Active Substance: AZACITIDINE
     Indication: Acute myeloid leukaemia
     Route: 058
     Dates: start: 20220215, end: 20220221
  6. AZACITIDINE [Concomitant]
     Active Substance: AZACITIDINE
     Route: 058
     Dates: start: 20220315, end: 20220321
  7. BISOPROLOL [Concomitant]
     Active Substance: BISOPROLOL
     Indication: Product used for unknown indication
     Dates: start: 202109
  8. VALSARTAN [Concomitant]
     Active Substance: VALSARTAN
     Indication: Product used for unknown indication
     Dates: start: 202111
  9. MOVICOL [Concomitant]
     Active Substance: POLYETHYLENE GLYCOL 3350\POTASSIUM CHLORIDE\SODIUM BICARBONATE\SODIUM CHLORIDE
     Indication: Product used for unknown indication
     Dates: start: 202003
  10. UNSPECIFIED INGREDIENT [Concomitant]
     Active Substance: UNSPECIFIED INGREDIENT
     Indication: Product used for unknown indication
     Dates: start: 202109
  11. POTASSIUM CHLORIDE [Concomitant]
     Active Substance: POTASSIUM CHLORIDE
     Indication: Product used for unknown indication
     Dates: start: 20220208
  12. MAGALDRATE [Concomitant]
     Active Substance: MAGALDRATE
     Indication: Product used for unknown indication
     Dates: start: 20220228
  13. NALOXONE HYDROCHLORIDE\TILIDINE HYDROCHLORIDE [Concomitant]
     Active Substance: NALOXONE HYDROCHLORIDE\TILIDINE HYDROCHLORIDE
     Indication: Product used for unknown indication
     Dates: start: 202112, end: 20220329
  14. NALOXONE HYDROCHLORIDE\TILIDINE HYDROCHLORIDE [Concomitant]
     Active Substance: NALOXONE HYDROCHLORIDE\TILIDINE HYDROCHLORIDE
     Dates: start: 20220330
  15. ZOLPIDEM [Concomitant]
     Active Substance: ZOLPIDEM TARTRATE
     Indication: Product used for unknown indication
     Dates: start: 20220331, end: 20220405
  16. ZOLPIDEM [Concomitant]
     Active Substance: ZOLPIDEM TARTRATE
     Dates: start: 20220210, end: 20220211
  17. ZOLPIDEM [Concomitant]
     Active Substance: ZOLPIDEM TARTRATE
     Dates: start: 20220214, end: 20220218
  18. ZOLPIDEM [Concomitant]
     Active Substance: ZOLPIDEM TARTRATE
     Dates: start: 20220220, end: 20220220
  19. PIPERACILLIN SODIUM\TAZOBACTAM SODIUM [Concomitant]
     Active Substance: PIPERACILLIN SODIUM\TAZOBACTAM SODIUM
     Indication: Product used for unknown indication
     Dates: start: 20220207, end: 20220207
  20. PIPERACILLIN SODIUM\TAZOBACTAM SODIUM [Concomitant]
     Active Substance: PIPERACILLIN SODIUM\TAZOBACTAM SODIUM
     Dates: start: 20220208, end: 20220213
  21. PIPERACILLIN SODIUM\TAZOBACTAM SODIUM [Concomitant]
     Active Substance: PIPERACILLIN SODIUM\TAZOBACTAM SODIUM
     Dates: start: 20220214, end: 20220214
  22. PIPERACILLIN SODIUM\TAZOBACTAM SODIUM [Concomitant]
     Active Substance: PIPERACILLIN SODIUM\TAZOBACTAM SODIUM
     Dates: start: 20220315, end: 20220315
  23. PIPERACILLIN SODIUM\TAZOBACTAM SODIUM [Concomitant]
     Active Substance: PIPERACILLIN SODIUM\TAZOBACTAM SODIUM
     Dates: start: 20220316, end: 20220322
  24. PIPERACILLIN SODIUM\TAZOBACTAM SODIUM [Concomitant]
     Active Substance: PIPERACILLIN SODIUM\TAZOBACTAM SODIUM
     Dates: start: 20220323, end: 20220323
  25. PERFALGAN [Concomitant]
     Active Substance: ACETAMINOPHEN
     Indication: Product used for unknown indication
     Dates: start: 20220208, end: 20220209
  26. PERFALGAN [Concomitant]
     Active Substance: ACETAMINOPHEN
     Dates: start: 20220316, end: 20220316
  27. PERFALGAN [Concomitant]
     Active Substance: ACETAMINOPHEN
     Dates: start: 20220315, end: 20220315
  28. KALIUM CHLORATUM STREULI [Concomitant]
     Indication: Product used for unknown indication
     Dates: start: 20220214, end: 20220218
  29. KALIUM CHLORATUM STREULI [Concomitant]
     Dates: start: 20220219, end: 20220220
  30. KALIUM CHLORATUM STREULI [Concomitant]
     Dates: start: 20220221, end: 20220317
  31. KALIUM CHLORATUM STREULI [Concomitant]
     Dates: start: 20220318, end: 20220319
  32. KALIUM CHLORATUM STREULI [Concomitant]
     Dates: start: 20220322, end: 20220331
  33. KALIUM CHLORATUM STREULI [Concomitant]
     Dates: start: 20220320, end: 20220320
  34. KALIUM CHLORATUM STREULI [Concomitant]
     Dates: start: 20220221, end: 20220317
  35. GRANISETRON [Concomitant]
     Active Substance: GRANISETRON
     Indication: Product used for unknown indication
     Dates: start: 20220215, end: 20220221
  36. GRANISETRON [Concomitant]
     Active Substance: GRANISETRON
     Dates: start: 20220315, end: 20220321
  37. DEXAMETHASONE [Concomitant]
     Active Substance: DEXAMETHASONE
     Indication: Product used for unknown indication
     Dates: start: 20210215, end: 20210221
  38. DEXAMETHASONE [Concomitant]
     Active Substance: DEXAMETHASONE
     Dates: start: 20220315, end: 20220323
  39. HYDROMORPHONE [Concomitant]
     Active Substance: HYDROMORPHONE
     Indication: Product used for unknown indication
     Dates: start: 20210219, end: 20210219
  40. HYDROMORPHONE [Concomitant]
     Active Substance: HYDROMORPHONE
     Dates: start: 20210221, end: 20220308
  41. MELPERONE [Concomitant]
     Active Substance: MELPERONE
     Indication: Product used for unknown indication
     Dates: start: 20220223, end: 20220228
  42. MELPERONE [Concomitant]
     Active Substance: MELPERONE
     Dates: start: 20220317, end: 20220317
  43. MELPERONE [Concomitant]
     Active Substance: MELPERONE
     Dates: start: 20220319, end: 20220321
  44. MELPERONE [Concomitant]
     Active Substance: MELPERONE
     Dates: start: 20220302, end: 20220329
  45. PLATELETS [Concomitant]
     Active Substance: HUMAN PLATELET, ALLOGENIC
     Indication: Product used for unknown indication
     Dates: start: 20220226, end: 20220226
  46. PLATELETS [Concomitant]
     Active Substance: HUMAN PLATELET, ALLOGENIC
     Dates: start: 20220329, end: 20220329
  47. PLATELETS [Concomitant]
     Active Substance: HUMAN PLATELET, ALLOGENIC
     Dates: start: 20220331, end: 20220331
  48. PLATELETS [Concomitant]
     Active Substance: HUMAN PLATELET, ALLOGENIC
     Dates: start: 20220304, end: 20220304
  49. HUMAN RED BLOOD CELL [Concomitant]
     Active Substance: HUMAN RED BLOOD CELL
     Indication: Product used for unknown indication
     Dates: start: 20220301, end: 20220301
  50. HUMAN RED BLOOD CELL [Concomitant]
     Active Substance: HUMAN RED BLOOD CELL
     Dates: start: 20220315, end: 20220315
  51. HUMAN RED BLOOD CELL [Concomitant]
     Active Substance: HUMAN RED BLOOD CELL
     Dates: start: 20220330, end: 20220330
  52. RIOPAN [Concomitant]
     Indication: Product used for unknown indication
     Dates: start: 20220228
  53. EVUSHELD [Concomitant]
     Active Substance: CILGAVIMAB\TIXAGEVIMAB
     Indication: Product used for unknown indication
     Dates: start: 20220308, end: 20220308
  54. ATROVENT [Concomitant]
     Active Substance: IPRATROPIUM BROMIDE
     Indication: Product used for unknown indication
     Dates: start: 20220319, end: 20220322
  55. SULTANOL [Concomitant]
     Active Substance: ALBUTEROL SULFATE
     Indication: Product used for unknown indication
     Dates: start: 20220319, end: 20220322
  56. METAMIZOLE [Concomitant]
     Active Substance: METAMIZOLE
     Indication: Product used for unknown indication
     Dates: start: 20220315, end: 20220315
  57. METAMIZOLE [Concomitant]
     Active Substance: METAMIZOLE
     Dates: start: 20220319, end: 20220321
  58. METAMIZOLE [Concomitant]
     Active Substance: METAMIZOLE
     Dates: start: 20220322, end: 20220322
  59. METAMIZOLE [Concomitant]
     Active Substance: METAMIZOLE
     Dates: start: 20220318, end: 20220318
  60. METAMIZOLE [Concomitant]
     Active Substance: METAMIZOLE
     Dates: start: 20220330, end: 20220330
  61. AMOXICILLIN\CLAVULANATE POTASSIUM [Concomitant]
     Active Substance: AMOXICILLIN\CLAVULANATE POTASSIUM
     Indication: Product used for unknown indication
     Dates: start: 20220323, end: 20220327
  62. POTASSIUM CARBONATE\POTASSIUM CITRATE [Concomitant]
     Active Substance: POTASSIUM CARBONATE\POTASSIUM CITRATE
     Indication: Product used for unknown indication
     Dates: start: 2020, end: 20220216
  63. POSACONAZOLE [Concomitant]
     Active Substance: POSACONAZOLE
     Indication: Product used for unknown indication
     Dates: start: 202111, end: 20220211
  64. POSACONAZOLE [Concomitant]
     Active Substance: POSACONAZOLE
     Dates: start: 20220212, end: 20220215
  65. RINGERS SOLUTION [Concomitant]
     Active Substance: CALCIUM CHLORIDE\POTASSIUM CHLORIDE\SODIUM CHLORIDE
     Indication: Product used for unknown indication
     Dates: start: 20220207, end: 20220207
  66. RINGERS SOLUTION [Concomitant]
     Active Substance: CALCIUM CHLORIDE\POTASSIUM CHLORIDE\SODIUM CHLORIDE
     Dates: start: 20220208, end: 20220208
  67. RINGERS SOLUTION [Concomitant]
     Active Substance: CALCIUM CHLORIDE\POTASSIUM CHLORIDE\SODIUM CHLORIDE
     Dates: start: 20220209, end: 20220214

REACTIONS (4)
  - Thrombocytopenia [Recovered/Resolved]
  - Back pain [Recovered/Resolved]
  - Catheter site infection [Recovered/Resolved]
  - Febrile neutropenia [Recovered/Resolved]

NARRATIVE: CASE EVENT DATE: 20220401
